FAERS Safety Report 9586587 (Version 2)
Quarter: 2013Q4

REPORT INFORMATION
  Report Type: Spontaneous
  Country: BR (occurrence: BR)
  Receive Date: 20131003
  Receipt Date: 20131106
  Transmission Date: 20140711
  Serious: Yes (Hospitalization, Other)
  Sender: FDA-Public Use
  Company Number: BR-ASTRAZENECA-2013SE72200

PATIENT
  Age: 74 Year
  Sex: Male
  Weight: 67 kg

DRUGS (4)
  1. ATACAND HCT [Suspect]
     Indication: HYPERTENSION
     Dosage: 8/12.5MG, DAILY
     Route: 048
     Dates: end: 20130923
  2. ATACAND [Suspect]
     Dosage: HALF TABLET BID
     Route: 048
     Dates: start: 20130924
  3. UNSPECIFIED CONTRAST [Suspect]
     Route: 065
     Dates: start: 20130823, end: 20130823
  4. JANUMET [Concomitant]
     Indication: DIABETES MELLITUS
     Dosage: DAILY
     Dates: start: 2009

REACTIONS (4)
  - Diabetes mellitus [Recovered/Resolved]
  - Venous occlusion [Recovered/Resolved]
  - Renal impairment [Recovering/Resolving]
  - Off label use [Not Recovered/Not Resolved]
